FAERS Safety Report 6679359-0 (Version None)
Quarter: 2010Q2

REPORT INFORMATION
  Report Type: 
  Country: None (occurrence: None)
  Receive Date: 20100413
  Receipt Date: 20100407
  Transmission Date: 20101027
  Serious: Yes (Hospitalization)
  Sender: FDA-Public Use
  Company Number: CA-SANOFI-AVENTIS-2010SA020607

PATIENT
  Age: 66 Year
  Sex: Male
  Weight: 88.9 kg

DRUGS (5)
  1. TAXOTERE [Suspect]
     Indication: PROSTATE CANCER
     Route: 041
     Dates: start: 20100324, end: 20100324
  2. ELIGARD [Suspect]
     Indication: PROSTATE CANCER
     Route: 065
     Dates: start: 20100310, end: 20100310
  3. CASODEX [Suspect]
     Indication: PROSTATE CANCER
     Route: 065
     Dates: start: 20100310, end: 20100402
  4. ANTIHYPERTENSIVES [Concomitant]
  5. UROLOGICALS [Concomitant]

REACTIONS (1)
  - FEBRILE NEUTROPENIA [None]
